FAERS Safety Report 23746366 (Version 1)
Quarter: 2024Q2

REPORT INFORMATION
  Report Type: Spontaneous
  Country: FR (occurrence: FR)
  Receive Date: 20240416
  Receipt Date: 20240416
  Transmission Date: 20240716
  Serious: Yes (Hospitalization, Other)
  Sender: FDA-Public Use
  Company Number: FR-CELLTRION INC.-2024FR008841

PATIENT

DRUGS (11)
  1. RITUXIMAB [Suspect]
     Active Substance: RITUXIMAB
     Indication: B-cell lymphoma
     Dosage: 700 MG, CYCLIC
     Route: 042
     Dates: start: 20201012, end: 20210309
  2. COMIRNATY (TOZINAMERAN) [Suspect]
     Active Substance: TOZINAMERAN
     Indication: COVID-19 immunisation
     Dosage: 2 DF
     Route: 030
     Dates: start: 20210222, end: 20210321
  3. COMIRNATY (TOZINAMERAN) [Suspect]
     Active Substance: TOZINAMERAN
     Dosage: 2 DF
     Route: 030
     Dates: start: 20210222, end: 20210321
  4. CYCLOPHOSPHAMIDE [Suspect]
     Active Substance: CYCLOPHOSPHAMIDE
     Indication: B-cell lymphoma
     Dosage: UNK, CYCLIC
     Route: 042
     Dates: start: 20201001, end: 20210309
  5. CYTARABINE [Suspect]
     Active Substance: CYTARABINE
     Indication: B-cell lymphoma
     Dosage: 30 MG, 1 TOTAL
     Route: 037
     Dates: start: 20201001, end: 20201001
  6. DOXORUBICIN [Suspect]
     Active Substance: DOXORUBICIN
     Indication: B-cell lymphoma
     Dosage: UNK
     Route: 042
     Dates: start: 20201012, end: 20210309
  7. ETOPOSIDE [Suspect]
     Active Substance: ETOPOSIDE
     Indication: B-cell lymphoma
     Dosage: 180 MG, 1 TOTAL
     Route: 042
     Dates: start: 20201001, end: 20201001
  8. METHOTREXATE [Suspect]
     Active Substance: METHOTREXATE
     Indication: B-cell lymphoma
     Dosage: 15 MG, 1 TOTAL
     Route: 037
     Dates: start: 20201001, end: 20201001
  9. METHOTREXATE [Suspect]
     Active Substance: METHOTREXATE
     Dosage: UNK UNK, CYCLIC
     Route: 042
     Dates: start: 20201102, end: 20210104
  10. METHYLPREDNISOLONE [Concomitant]
     Active Substance: METHYLPREDNISOLONE
     Dosage: 40 MG, 1 TOTAL
     Route: 037
     Dates: start: 20201001, end: 20201001
  11. PREDNISOLONE [Concomitant]
     Active Substance: PREDNISOLONE
     Dosage: UNK, CYCLIC
     Route: 048
     Dates: start: 20201001, end: 20210313

REACTIONS (2)
  - Polyneuropathy [Recovering/Resolving]
  - Overdose [Unknown]

NARRATIVE: CASE EVENT DATE: 20210301
